FAERS Safety Report 13689728 (Version 1)
Quarter: 2017Q2

REPORT INFORMATION
  Report Type: Report from Study
  Country: US (occurrence: US)
  Receive Date: 20170626
  Receipt Date: 20170626
  Transmission Date: 20170830
  Serious: Yes (Other)
  Sender: FDA-Public Use
  Company Number: US-TEVA-780153USA

PATIENT
  Sex: Female

DRUGS (1)
  1. COPAXONE [Suspect]
     Active Substance: GLATIRAMER ACETATE
     Indication: MULTIPLE SCLEROSIS
     Route: 058
     Dates: start: 20150521, end: 20150601

REACTIONS (3)
  - Dyspnoea [Unknown]
  - Burning sensation [Unknown]
  - Skin discolouration [Unknown]

NARRATIVE: CASE EVENT DATE: 2016
